FAERS Safety Report 8158233-7 (Version None)
Quarter: 2012Q1

REPORT INFORMATION
  Report Type: 
  Country: None (occurrence: None)
  Receive Date: 20120223
  Receipt Date: 20120211
  Transmission Date: 20120608
  Serious: Yes (Death, Hospitalization)
  Sender: FDA-Public Use
  Company Number: GB-PAR PHARMACEUTICAL, INC-2012SCPR004215

PATIENT

DRUGS (1)
  1. DEXAMETHASONE [Suspect]
     Indication: STRIDOR
     Dosage: 8 MG, THREE TIMES DAILY
     Route: 065

REACTIONS (3)
  - DEATH [None]
  - PNEUMOPERITONEUM [None]
  - IMPAIRED HEALING [None]
